FAERS Safety Report 8418116-1 (Version None)
Quarter: 2012Q2

REPORT INFORMATION
  Report Type: 
  Country: None (occurrence: None)
  Receive Date: 20120604
  Receipt Date: 20120604
  Transmission Date: 20120825
  Serious: Yes (Life-Threatening, Other)
  Sender: FDA-Public Use
  Company Number: None

PATIENT
  Age: 23 Year
  Sex: Female
  Weight: 74.3899 kg

DRUGS (1)
  1. HYDROCODONE BITARTRATE + ACETAMINOPHEN [Suspect]
     Indication: CHOLECYSTECTOMY
     Dosage: 7.5-750 1EVERY 4-6HOURS PO
     Route: 048
     Dates: start: 20120523, end: 20120525

REACTIONS (10)
  - BODY TEMPERATURE INCREASED [None]
  - PAIN [None]
  - BLOOD PRESSURE INCREASED [None]
  - HEPATIC ENZYME INCREASED [None]
  - PULMONARY OEDEMA [None]
  - BREATH SOUNDS ABNORMAL [None]
  - RASH MACULAR [None]
  - DYSPNOEA [None]
  - FLUSHING [None]
  - TREMOR [None]
